FAERS Safety Report 9420430 (Version 1)
Quarter: 2013Q3

REPORT INFORMATION
  Report Type: Spontaneous
  Country: US (occurrence: US)
  Receive Date: 20130725
  Receipt Date: 20130725
  Transmission Date: 20140515
  Serious: No
  Sender: FDA-Public Use
  Company Number: US-ABBOTT-13P-163-1059078-00

PATIENT
  Age: 63 Year
  Sex: Female
  Weight: 43.13 kg

DRUGS (2)
  1. SYNTHROID [Suspect]
     Indication: HORMONE REPLACEMENT THERAPY
     Dates: start: 20120718, end: 201301
  2. SYNTHROID [Suspect]
     Dates: start: 201301

REACTIONS (2)
  - Therapy change [Unknown]
  - Palpitations [Recovering/Resolving]
